FAERS Safety Report 9199153 (Version 2)
Quarter: 2013Q2

REPORT INFORMATION
  Report Type: Spontaneous
  Country: US (occurrence: None)
  Receive Date: 20130325
  Receipt Date: 20130401
  Transmission Date: 20140414
  Serious: No
  Sender: FDA-Public Use
  Company Number: 2013US-004569

PATIENT
  Age: 32 Year
  Sex: Female
  Weight: 50 kg

DRUGS (20)
  1. OMONTYS (PEGINESATIDE) SOLUTION FOR INJECTION [Suspect]
     Indication: NEPHROGENIC ANAEMIA
     Dosage: 8 MG, SINGLE, INTRAVENOUS
     Route: 042
     Dates: start: 20130211, end: 20130211
  2. EPOGEN (EPOETIN ALFA) [Concomitant]
  3. ZEMPLAR (PARICALCITOL) [Concomitant]
  4. ACETAMINOPHEN (PARACETAMOL) [Concomitant]
  5. HEPARIN (HEPARIN) [Concomitant]
  6. PROMETHAZINE HYDROCHLORIDE (PROMETHAZINE HYDROCHLORIDE) [Concomitant]
  7. HYPERTONIC SALINE SOLUTION (SODIUM CHLORIDE) [Concomitant]
  8. DIPHENHYDRAMINE (DIPHENHYDRAMINE) [Concomitant]
  9. MANNITOL (MANNITOL) [Concomitant]
  10. METOCLOPRAMIDE HCL (METOCLOPRAMIDE HYDROCHLORIDE) [Concomitant]
  11. OXYCODONE (OXYCODONE) [Concomitant]
  12. HYDROXYCHLOROQUINE (HYDROXYCHLOROQUINE) [Concomitant]
  13. PLAQUINOL (HYDROXYCHLOROQUINE SULFATE) [Concomitant]
  14. LABETALOL (LABETALOL) [Concomitant]
  15. LEXAPRO (ESCITALOPRAM OXALATE) [Concomitant]
  16. AMLODIPINE BESILATE (AMLODIPINE BESILATE) [Concomitant]
  17. CLONIDINE (CLONIDINE) [Concomitant]
  18. COUMADINE (WARFARIN SODIUM) [Concomitant]
  19. LIDOCAINE AND PRILOCAINE (LIDOCAINE, PRILOCAINE) [Concomitant]
  20. RENVELA (SEVELAMER CARBONATE) [Concomitant]

REACTIONS (9)
  - Drug hypersensitivity [None]
  - Chest pain [None]
  - Hyperhidrosis [None]
  - Feeling abnormal [None]
  - Swelling face [None]
  - Lip swelling [None]
  - Nausea [None]
  - Vomiting [None]
  - Product quality issue [None]
